FAERS Safety Report 14227897 (Version 1)
Quarter: 2017Q4

REPORT INFORMATION
  Report Type: Report from Study
  Country: US (occurrence: US)
  Receive Date: 20171127
  Receipt Date: 20171127
  Transmission Date: 20180321
  Serious: Yes (Death)
  Sender: FDA-Public Use
  Company Number: US-EXELIXIS-CABO-17011401

PATIENT
  Age: 73 Year
  Sex: Male

DRUGS (25)
  1. BETAMETHASONE DIPROPIONATE. [Concomitant]
     Active Substance: BETAMETHASONE DIPROPIONATE
  2. NIZORAL [Concomitant]
     Active Substance: KETOCONAZOLE
  3. REMERON [Concomitant]
     Active Substance: MIRTAZAPINE
  4. ZOFRAN [Concomitant]
     Active Substance: ONDANSETRON HYDROCHLORIDE
  5. POTASSIUM CHLORIDE. [Concomitant]
     Active Substance: POTASSIUM CHLORIDE
  6. CLINDAMYCIN. [Concomitant]
     Active Substance: CLINDAMYCIN
  7. KENALOG [Concomitant]
     Active Substance: TRIAMCINOLONE ACETONIDE
  8. CABOMETYX [Suspect]
     Active Substance: CABOZANTINIB S-MALATE
     Indication: RENAL CANCER
     Dosage: 60 MG, QD
     Route: 048
     Dates: start: 20160901
  9. BROMPHENIRAMINE, DEXTROMETHORPHAN AND PSEUDO. [Concomitant]
  10. CATAPRES [Concomitant]
     Active Substance: CLONIDINE HYDROCHLORIDE
  11. HYDROCODONE [Concomitant]
     Active Substance: HYDROCODONE
  12. MULTI VIT [Concomitant]
  13. LEVOTHYROXINE. [Concomitant]
     Active Substance: LEVOTHYROXINE
  14. RED YEAST RICE [Concomitant]
     Active Substance: DIETARY SUPPLEMENT
  15. FERGON [Concomitant]
     Active Substance: FERROUS GLUCONATE
  16. SENNA [Concomitant]
     Active Substance: SENNA LEAF\SENNOSIDES\SENNOSIDES A AND B
  17. CO-ENZYME Q13 [Concomitant]
  18. LEVOTHROID [Concomitant]
     Active Substance: LEVOTHYROXINE SODIUM
  19. LEVAQUIN [Concomitant]
     Active Substance: LEVOFLOXACIN
  20. TYLENOL [Concomitant]
     Active Substance: ACETAMINOPHEN
  21. LOMOTIL [Concomitant]
     Active Substance: ATROPINE SULFATE\DIPHENOXYLATE HYDROCHLORIDE
  22. ADALAT CC [Concomitant]
     Active Substance: NIFEDIPINE
  23. VENTOLIN [Concomitant]
     Active Substance: ALBUTEROL SULFATE
  24. FLONASE [Concomitant]
     Active Substance: FLUTICASONE PROPIONATE
  25. PREDNISONE. [Concomitant]
     Active Substance: PREDNISONE

REACTIONS (1)
  - Death [Fatal]

NARRATIVE: CASE EVENT DATE: 20170720
